FAERS Safety Report 8493839-7 (Version None)
Quarter: 2012Q3

REPORT INFORMATION
  Report Type: 
  Country: None (occurrence: None)
  Receive Date: 20120706
  Receipt Date: 20120703
  Transmission Date: 20120928
  Serious: Yes (Death, Other)
  Sender: FDA-Public Use
  Company Number: PHHY2012GB057524

PATIENT
  Age: 48 Year
  Sex: Male

DRUGS (4)
  1. CYCLOSPORINE [Suspect]
     Indication: CHRONIC GRAFT VERSUS HOST DISEASE
  2. MYCOPHENOLATE MOFETIL [Suspect]
     Indication: CHRONIC GRAFT VERSUS HOST DISEASE
     Dates: start: 20090201
  3. PREDNISOLONE [Suspect]
     Indication: CHRONIC GRAFT VERSUS HOST DISEASE
     Dates: start: 20090201
  4. BUDESONIDE [Suspect]
     Indication: GRAFT VERSUS HOST DISEASE
     Dosage: UNK
     Dates: start: 20090201

REACTIONS (4)
  - LUNG ADENOCARCINOMA METASTATIC [None]
  - SKIN PAPILLOMA [None]
  - RENAL IMPAIRMENT [None]
  - PAPILLOMA VIRAL INFECTION [None]
